FAERS Safety Report 5705660-0 (Version None)
Quarter: 2008Q2

REPORT INFORMATION
  Report Type: 
  Country: None (occurrence: None)
  Receive Date: 20080415
  Receipt Date: 20080410
  Transmission Date: 20081010
  Serious: Yes (Hospitalization)
  Sender: FDA-Public Use
  Company Number: CA-JNJFOC-20080402539

PATIENT
  Age: 45 Year
  Sex: Female
  Weight: 58.5 kg

DRUGS (3)
  1. INFLIXIMAB [Suspect]
     Indication: HEPATITIS C
     Route: 042
  2. PEG-INTRON [Suspect]
     Indication: HEPATITIS C
     Route: 058
  3. RIBAVIRIN [Suspect]
     Indication: HEPATITIS C
     Route: 048

REACTIONS (2)
  - AGITATED DEPRESSION [None]
  - CONFUSIONAL STATE [None]
